FAERS Safety Report 7356891 (Version 27)
Quarter: 2014Q1

REPORT INFORMATION
  Report Type: Spontaneous
  Country: US (occurrence: US)
  Receive Date: 20100416
  Receipt Date: 20140212
  Transmission Date: 20141002
  Serious: Yes (Hospitalization, Other)
  Sender: FDA-Public Use
  Company Number: PHEH2010US03401

PATIENT
  Age: 39 Year
  Sex: Female

DRUGS (40)
  1. ZOMETA [Suspect]
     Indication: PLASMA CELL MYELOMA
     Dosage: 4 MG, QMO
     Route: 042
     Dates: end: 20090401
  2. METFORMIN [Concomitant]
  3. FUROSEMIDE [Concomitant]
  4. LEXAPRO [Concomitant]
  5. COMPAZINE [Concomitant]
  6. AMITRIPTYLINE [Concomitant]
  7. METOPROLOL [Concomitant]
  8. ALPRAZOLAM [Concomitant]
  9. ABILIFY [Concomitant]
  10. LISINOPRIL [Concomitant]
  11. LIPITOR                                 /NET/ [Concomitant]
  12. PREDNISONE [Concomitant]
     Indication: PLASMA CELL MYELOMA
  13. CHEMOTHERAPEUTICS [Concomitant]
  14. ASPIRIN [Concomitant]
     Dosage: 81 MG,
  15. PREVACID [Concomitant]
  16. GEMFIBROZIL [Concomitant]
  17. REVLIMID [Concomitant]
     Dosage: 10 MG,
  18. MORPHINE [Concomitant]
  19. DEXAMETHASONE [Concomitant]
  20. LIPITOR [Concomitant]
  21. BUSPIRONE [Concomitant]
  22. OMEPRAZOLE [Concomitant]
  23. RAMIPRIL [Concomitant]
  24. NITROGLYCERIN [Concomitant]
  25. PRILOSEC [Concomitant]
  26. CELEBREX [Concomitant]
  27. HYDROCHLOROTHIAZIDE [Concomitant]
  28. DISODIUM HYDROGEN CITRATE [Concomitant]
  29. ALBUTEROL [Concomitant]
  30. CARAFATE [Concomitant]
     Dosage: 1 G, QID
  31. FLEXAR [Concomitant]
  32. METOCLOPRAMIDE [Concomitant]
     Dosage: 10 MG, QID
  33. PEPCID [Concomitant]
     Dosage: 40 MG, UNK
  34. VERAPAMIL [Concomitant]
     Dosage: 80 MG, UNK
  35. TRAMADOL [Concomitant]
  36. ALTACE [Concomitant]
  37. POTASSIUM [Concomitant]
     Dosage: 10 MG, UNK
  38. ONDASETRON [Concomitant]
     Dosage: 4 MG, UNK
     Route: 017
  39. MS CONTIN [Concomitant]
     Dosage: 30 MG, UNK
     Route: 048
  40. ARANESP [Concomitant]
     Dosage: 200 UG, QW2
     Route: 058

REACTIONS (155)
  - Diabetes mellitus [Not Recovered/Not Resolved]
  - Spinal osteoarthritis [Unknown]
  - Neuropathy peripheral [Unknown]
  - Osteonecrosis of jaw [Unknown]
  - General physical health deterioration [Unknown]
  - Disability [Unknown]
  - Pain [Unknown]
  - Anxiety [Unknown]
  - Bone fragmentation [Unknown]
  - Anhedonia [Unknown]
  - Dental caries [Unknown]
  - Exposed bone in jaw [Unknown]
  - Fibromyalgia [Unknown]
  - Monoclonal gammopathy [Unknown]
  - Neutropenia [Unknown]
  - Metastases to bone [Unknown]
  - Arrhythmia [Unknown]
  - Palpitations [Unknown]
  - Incisional hernia [Unknown]
  - Hiatus hernia [Unknown]
  - Urinary tract infection [Unknown]
  - Urinary retention [Unknown]
  - Depression [Unknown]
  - Bipolar disorder [Unknown]
  - Hypertension [Unknown]
  - Arthritis [Unknown]
  - Peptic ulcer [Unknown]
  - Viral upper respiratory tract infection [Unknown]
  - Gastrooesophageal reflux disease [Unknown]
  - Migraine [Unknown]
  - Dizziness [Unknown]
  - Dyslipidaemia [Unknown]
  - Obesity [Unknown]
  - Oedema [Unknown]
  - Hypoaesthesia [Unknown]
  - Anaemia [Unknown]
  - Cardiac disorder [Unknown]
  - Eye swelling [Unknown]
  - Chest pain [Unknown]
  - Breast pain [Unknown]
  - Deep vein thrombosis [Unknown]
  - Atelectasis [Unknown]
  - Tachycardia [Unknown]
  - Small intestinal obstruction [Recovered/Resolved]
  - Periodontitis [Unknown]
  - Asthma [Unknown]
  - Night sweats [Unknown]
  - Gastric polyps [Unknown]
  - Lipoma [Unknown]
  - Acute sinusitis [Unknown]
  - Ear pain [Unknown]
  - Thyroid disorder [Unknown]
  - Dyspnoea [Unknown]
  - Orthopnoea [Unknown]
  - Bence Jones proteinuria [Unknown]
  - Cardiomegaly [Unknown]
  - Back pain [Unknown]
  - Pain in extremity [Unknown]
  - Spinal fracture [Unknown]
  - Intervertebral disc degeneration [Unknown]
  - Abdominal pain upper [Unknown]
  - Splenomegaly [Unknown]
  - Musculoskeletal pain [Unknown]
  - Diverticulum intestinal [Unknown]
  - Hypokalaemia [Unknown]
  - Odynophagia [Unknown]
  - Thrombocytopenia [Unknown]
  - Gastroenteritis [Recovered/Resolved]
  - Haematemesis [Unknown]
  - Vitamin B12 deficiency [Unknown]
  - Cerebrovascular accident [Unknown]
  - Cardiac failure congestive [Unknown]
  - Arteriosclerosis coronary artery [Unknown]
  - Syncope [Unknown]
  - Pyelonephritis [Unknown]
  - Schizophrenia [Unknown]
  - Ventricular hypertrophy [Unknown]
  - Aortic calcification [Unknown]
  - Panic disorder without agoraphobia [Unknown]
  - Arthralgia [Unknown]
  - Joint swelling [Unknown]
  - Local swelling [Unknown]
  - Dysuria [Not Recovered/Not Resolved]
  - Constipation [Unknown]
  - Urinary hesitation [Unknown]
  - Nocturia [Unknown]
  - Angina pectoris [Unknown]
  - Faeces discoloured [Unknown]
  - Bronchitis [Unknown]
  - Pneumonia [Unknown]
  - Abdominal hernia [Unknown]
  - Thrombophlebitis [Unknown]
  - Hypersomnia [Unknown]
  - Vomiting [Unknown]
  - Hepatosplenomegaly [Unknown]
  - Biliary dilatation [Unknown]
  - Epistaxis [Unknown]
  - Oral candidiasis [Unknown]
  - Diastolic dysfunction [Unknown]
  - Mitral valve incompetence [Unknown]
  - Tricuspid valve incompetence [Unknown]
  - Pleurisy [Unknown]
  - Coronary artery disease [Unknown]
  - Impaired gastric emptying [Unknown]
  - Dyspepsia [Unknown]
  - Fall [Unknown]
  - Hepatic steatosis [Unknown]
  - Nicotine dependence [Unknown]
  - Gastritis [Unknown]
  - Intermittent claudication [Unknown]
  - Pulmonary mass [Unknown]
  - Carpal tunnel syndrome [Unknown]
  - Dysphagia [Unknown]
  - Systemic lupus erythematosus [Unknown]
  - Initial insomnia [Unknown]
  - Depressed mood [Unknown]
  - Panic disorder with agoraphobia [Unknown]
  - Osteoarthritis [Unknown]
  - Suicidal ideation [Unknown]
  - Delusion [Unknown]
  - Paranoid personality disorder [Unknown]
  - Confusional state [Unknown]
  - Hyperlipidaemia [Unknown]
  - Dehydration [Unknown]
  - Intervertebral disc space narrowing [Unknown]
  - Osteolysis [Unknown]
  - Cellulitis [Unknown]
  - Sleep apnoea syndrome [Unknown]
  - Gastric ulcer [Unknown]
  - Hyperhidrosis [Unknown]
  - Chest discomfort [Unknown]
  - Hypercholesterolaemia [Unknown]
  - Overweight [Unknown]
  - Nausea [Unknown]
  - Lung infiltration [Unknown]
  - Spinal compression fracture [Unknown]
  - Cough [Unknown]
  - Back injury [Unknown]
  - Pathological fracture [Unknown]
  - Bone pain [Unknown]
  - Oedema peripheral [Unknown]
  - Skin lesion [Unknown]
  - Porokeratosis [Unknown]
  - Pulmonary oedema [Unknown]
  - Muscle spasms [Unknown]
  - Metastases to spine [Unknown]
  - Tooth loss [Unknown]
  - Contusion [Unknown]
  - Metaplasia [Unknown]
  - Bone swelling [Unknown]
  - Fibrosis [Unknown]
  - Duodenitis [Unknown]
  - Pancytopenia [Unknown]
  - Tenderness [Unknown]
  - Pyrexia [Unknown]
